FAERS Safety Report 19521174 (Version 1)
Quarter: 2021Q3

REPORT INFORMATION
  Report Type: Spontaneous
  Country: US (occurrence: US)
  Receive Date: 20210712
  Receipt Date: 20210712
  Transmission Date: 20211014
  Serious: No
  Sender: FDA-Public Use
  Company Number: US-TAKEDA-2021TUS041696

PATIENT
  Sex: Female

DRUGS (2)
  1. MOTEGRITY [Suspect]
     Active Substance: PRUCALOPRIDE SUCCINATE
     Indication: CONSTIPATION
     Dosage: 2 MILLIGRAM, QD
     Route: 065
  2. MILK OF MAGNESIA [Concomitant]
     Active Substance: MAGNESIUM HYDROXIDE
     Route: 065

REACTIONS (4)
  - Nausea [Unknown]
  - Gastric disorder [Unknown]
  - Drug ineffective [Unknown]
  - Pain [Unknown]
